FAERS Safety Report 8969097 (Version 3)
Quarter: 2013Q1

REPORT INFORMATION
  Report Type: Spontaneous
  Country: GB (occurrence: None)
  Receive Date: 20121210
  Receipt Date: 20130122
  Transmission Date: 20140127
  Serious: Yes (Hospitalization)
  Sender: FDA-Public Use
  Company Number: DSA_61298_2012

PATIENT
  Age: 65 Year
  Sex: Male

DRUGS (12)
  1. FLUOROURACIL [Suspect]
     Indication: COLORECTAL CANCER METASTATIC
     Dosage: 400 MG/M2 EVERY CYCLE INTRAVENOUS (NOT OTHERWISE SPECIFIED)
     Route: 042
     Dates: start: 20121001, end: 20121015
  2. AFLIBERCEPT [Suspect]
     Indication: COLORECTAL CANCER METASTATIC
     Dosage: 4 MG/KG; EVERY CYCLE INTRAVANEOUS (NOT OTHERWISE SPECIFIED)
     Route: 042
     Dates: start: 20121001, end: 20121001
  3. IRINOTECAN [Suspect]
     Indication: COLORECTAL CANCER METASTATIC
     Dosage: 180 MG/KG; EVERY CYCLE INTRAVANEOUS (NOT OTHERWISE SPECIFIED)
     Route: 042
     Dates: start: 20121001, end: 20121001
  4. LEUCOVORIN [Suspect]
     Indication: COLORECTAL CANCER METASTATIC
     Dosage: 400 MG/KG; EVERY CYCLE INTRAVANEOUS (NOT OTHERWISE SPECIFIED)
     Route: 042
     Dates: start: 20121001
  5. CALCIUM CHANNEL BLOCKERS [Concomitant]
  6. LOPERAMIDE [Concomitant]
  7. VIATAMIN B12 [Concomitant]
  8. LACTULOSE [Concomitant]
  9. ANTIBIOTICS [Concomitant]
  10. DOBENDAN STREPSILS SYNERGIE [Concomitant]
  11. DIFFLAM [Concomitant]
  12. MACROGOL [Concomitant]

REACTIONS (2)
  - Neutropenic sepsis [None]
  - Upper respiratory tract infection [None]
